FAERS Safety Report 10053555 (Version 1)
Quarter: 2014Q2

REPORT INFORMATION
  Report Type: Spontaneous
  Country: US (occurrence: US)
  Receive Date: 20140402
  Receipt Date: 20140402
  Transmission Date: 20141212
  Serious: No
  Sender: FDA-Public Use
  Company Number: US-PFIZER INC-2014090211

PATIENT
  Age: 50 Year
  Sex: Female
  Weight: 158.73 kg

DRUGS (2)
  1. FLECTOR [Suspect]
     Indication: PAIN
     Dosage: UNK, 1X/DAY
     Route: 062
     Dates: start: 2013
  2. GILENYA [Concomitant]
     Indication: MULTIPLE SCLEROSIS
     Dosage: 0.05 MG, 1X/DAY

REACTIONS (2)
  - Product adhesion issue [Unknown]
  - Reticulin increased [Unknown]
